FAERS Safety Report 5884590-8 (Version None)
Quarter: 2008Q3

REPORT INFORMATION
  Report Type: 
  Country: None (occurrence: None)
  Receive Date: 20080915
  Receipt Date: 20080915
  Transmission Date: 20090109
  Serious: Yes (Other)
  Sender: FDA-Public Use
  Company Number: None

PATIENT
  Age: 83 Year
  Sex: Female
  Weight: 43.9989 kg

DRUGS (1)
  1. CATAPRES-TTS-3 [Suspect]
     Indication: HYPERTENSION
     Dosage: 3 MG/24HR Q WEEK TRANSDERMAL
     Route: 062

REACTIONS (2)
  - BLOOD PRESSURE INCREASED [None]
  - BLOOD PRESSURE SYSTOLIC INCREASED [None]
